FAERS Safety Report 7234799-6 (Version None)
Quarter: 2011Q1

REPORT INFORMATION
  Report Type: 
  Country: None (occurrence: None)
  Receive Date: 20110114
  Receipt Date: 20110114
  Transmission Date: 20110831
  Serious: No
  Sender: FDA-Public Use
  Company Number: None

PATIENT
  Age: 70 Year
  Sex: Male

DRUGS (1)
  1. EZETIMIBE [Suspect]
     Indication: HYPERLIPIDAEMIA
     Dates: start: 20100903, end: 20100929

REACTIONS (2)
  - REFUSAL OF TREATMENT BY PATIENT [None]
  - VISUAL IMPAIRMENT [None]
